FAERS Safety Report 6193548-3 (Version None)
Quarter: 2009Q2

REPORT INFORMATION
  Report Type: 
  Country: None (occurrence: None)
  Receive Date: 20090518
  Receipt Date: 20090512
  Transmission Date: 20091009
  Serious: Yes (Hospitalization)
  Sender: FDA-Public Use
  Company Number: JP-MERCK-0905USA01722

PATIENT
  Age: 66 Year
  Sex: Female

DRUGS (5)
  1. FOSAMAX [Suspect]
     Route: 048
     Dates: end: 20090504
  2. NORVASC [Concomitant]
     Route: 048
     Dates: end: 20090413
  3. FLUITRAN [Concomitant]
     Route: 048
     Dates: end: 20090413
  4. CIRCULIN [Concomitant]
     Route: 048
     Dates: end: 20090413
  5. ALLELOCK [Concomitant]
     Route: 048
     Dates: end: 20090301

REACTIONS (1)
  - ERYTHEMA MULTIFORME [None]
